FAERS Safety Report 15676861 (Version 1)
Quarter: 2018Q4

REPORT INFORMATION
  Report Type: Spontaneous
  Country: US (occurrence: US)
  Receive Date: 20181130
  Receipt Date: 20181130
  Transmission Date: 20190205
  Serious: Yes (Other)
  Sender: FDA-Public Use
  Company Number: US-PFIZER INC-2018483258

PATIENT
  Age: 55 Year
  Sex: Female

DRUGS (1)
  1. LYRICA [Suspect]
     Active Substance: PREGABALIN
     Dosage: 3 CAPSULES, TWICE PER DAY
     Route: 048
     Dates: start: 201301

REACTIONS (3)
  - Drug effect incomplete [Unknown]
  - Poor quality product administered [Unknown]
  - Product quality issue [Unknown]
